FAERS Safety Report 6080190-8 (Version None)
Quarter: 2009Q1

REPORT INFORMATION
  Report Type: 
  Country: None (occurrence: None)
  Receive Date: 20090217
  Receipt Date: 20090210
  Transmission Date: 20090719
  Serious: Yes (Other)
  Sender: FDA-Public Use
  Company Number: NL-ELI_LILLY_AND_COMPANY-NL200811001566

PATIENT
  Sex: Female
  Weight: 125 kg

DRUGS (5)
  1. PROZAC [Suspect]
     Indication: DEPRESSION
     Dosage: 40 MG, UNK
     Route: 048
     Dates: start: 20081015, end: 20081106
  2. SERTRALINE [Concomitant]
     Dates: start: 20070101, end: 20081014
  3. LORAZEPAM [Concomitant]
     Indication: RESTLESSNESS
     Dosage: 2.5 MG, 2/D
     Route: 048
  4. OXAZEPAM [Concomitant]
     Indication: ANXIETY
     Dosage: 10 MG, 3/D
     Route: 048
  5. DIPIPERON [Concomitant]
     Indication: RESTLESSNESS
     Dosage: 40 MG, UNK
     Route: 048

REACTIONS (6)
  - AGITATION [None]
  - ATTENTION DEFICIT/HYPERACTIVITY DISORDER [None]
  - MANIA [None]
  - PERSONALITY DISORDER [None]
  - RESTLESSNESS [None]
  - SLEEP DISORDER [None]
